FAERS Safety Report 21247810 (Version 1)
Quarter: 2022Q3

REPORT INFORMATION
  Report Type: Report from Study
  Country: US (occurrence: US)
  Receive Date: 20220824
  Receipt Date: 20220824
  Transmission Date: 20221026
  Serious: Yes (Hospitalization)
  Sender: FDA-Public Use
  Company Number: US-ABBVIE-22K-163-4514103-00

PATIENT
  Age: 87 Year
  Sex: Female

DRUGS (3)
  1. VENCLEXTA [Suspect]
     Active Substance: VENETOCLAX
     Indication: Acute myeloid leukaemia
     Dosage: DAY 1, 1 TABLET BY MOUTH WITH FOOD AND FULL GLASS OF WATER
     Route: 048
     Dates: start: 20220816, end: 20220816
  2. VENCLEXTA [Suspect]
     Active Substance: VENETOCLAX
     Dosage: DAY 2, 2 TABLET ON DAY 2  WITH FOOD AND FULL GLASS OF WATER
     Route: 048
     Dates: start: 20220817, end: 20220817
  3. VENCLEXTA [Suspect]
     Active Substance: VENETOCLAX
     Dosage: 4 TABLETS ONCE DAILY WITH FOOD AND FULL GLASS OF WATER
     Route: 048
     Dates: start: 202208

REACTIONS (3)
  - Full blood count decreased [Not Recovered/Not Resolved]
  - Abdominal distension [Not Recovered/Not Resolved]
  - Fluid retention [Not Recovered/Not Resolved]

NARRATIVE: CASE EVENT DATE: 20220801
